FAERS Safety Report 4771705-8 (Version None)
Quarter: 2005Q3

REPORT INFORMATION
  Report Type: 
  Country: None (occurrence: None)
  Receive Date: 20050916
  Receipt Date: 20050718
  Transmission Date: 20060218
  Serious: Yes (Hospitalization)
  Sender: FDA-Public Use
  Company Number: 200512410FR

PATIENT
  Age: 46 Year
  Sex: Female

DRUGS (11)
  1. OFLOCET [Suspect]
     Route: 042
     Dates: start: 20050531, end: 20050620
  2. LOVENOX [Suspect]
     Route: 058
     Dates: start: 20050603, end: 20050620
  3. OXACILLIN [Suspect]
     Route: 042
     Dates: start: 20050601, end: 20050620
  4. GENTAMYCIN SULFATE [Suspect]
     Route: 042
     Dates: start: 20050601, end: 20050616
  5. AVLOCARDYL [Concomitant]
  6. SKENAN [Concomitant]
  7. ZOMIG [Concomitant]
  8. FORLAX [Concomitant]
  9. OMEPRAZOLE [Concomitant]
     Indication: GASTRODUODENAL ULCER
     Route: 048
     Dates: start: 20050520, end: 20050620
  10. ROCEPHIN [Concomitant]
     Dates: start: 20050621, end: 20050630
  11. VANCOMYCIN [Concomitant]
     Dates: start: 20050621, end: 20050712

REACTIONS (4)
  - AGRANULOCYTOSIS [None]
  - NEUTROPENIA [None]
  - RENAL FAILURE [None]
  - THROMBOCYTOPENIA [None]
